FAERS Safety Report 6582187-8 (Version None)
Quarter: 2010Q1

REPORT INFORMATION
  Report Type: 
  Country: None (occurrence: None)
  Receive Date: 20100203
  Receipt Date: 20100126
  Transmission Date: 20100710
  Serious: Yes (Disabling)
  Sender: FDA-Public Use
  Company Number: 489895

PATIENT
  Sex: Female

DRUGS (1)
  1. BUPIVACAINE HCL [Suspect]
     Indication: ANALGESIC THERAPY
     Dosage: CONTINUOUS, INJECTION
     Dates: start: 20080801

REACTIONS (3)
  - INJECTION SITE JOINT MOVEMENT IMPAIRMENT [None]
  - INJURY [None]
  - MUSCULOSKELETAL PAIN [None]
